FAERS Safety Report 7676794-9 (Version None)
Quarter: 2011Q3

REPORT INFORMATION
  Report Type: 
  Country: None (occurrence: None)
  Receive Date: 20110809
  Receipt Date: 20110809
  Transmission Date: 20111222
  Serious: No
  Sender: FDA-Public Use
  Company Number: None

PATIENT
  Age: 65 Year
  Sex: Male

DRUGS (3)
  1. LEVETIRACETAM [Suspect]
     Dates: start: 20090831, end: 20091023
  2. CEPHALEXIN [Suspect]
     Dates: start: 20090914, end: 20090924
  3. TEMOZOLOMIDE [Suspect]
     Dates: start: 20090801, end: 20091008

REACTIONS (12)
  - LIVER DISORDER [None]
  - HYPOTENSION [None]
  - BLOOD BILIRUBIN INCREASED [None]
  - RENAL FAILURE ACUTE [None]
  - BLOOD ALKALINE PHOSPHATASE INCREASED [None]
  - MELAENA [None]
  - ALANINE AMINOTRANSFERASE INCREASED [None]
  - GASTROINTESTINAL HAEMORRHAGE [None]
  - CHOLELITHIASIS [None]
  - DISEASE RECURRENCE [None]
  - CELLULITIS [None]
  - ASPARTATE AMINOTRANSFERASE INCREASED [None]
